FAERS Safety Report 15677736 (Version 1)
Quarter: 2018Q4

REPORT INFORMATION
  Report Type: Report from Study
  Country: US (occurrence: US)
  Receive Date: 20181130
  Receipt Date: 20181130
  Transmission Date: 20190205
  Serious: Yes (Hospitalization)
  Sender: FDA-Public Use
  Company Number: US-TEVA-2018-US-980404

PATIENT
  Sex: Male

DRUGS (19)
  1. GOCOVRI [Suspect]
     Active Substance: AMANTADINE
     Indication: DYSKINESIA
     Dosage: 137 MILLIGRAM DAILY; AT BED TIME
     Route: 048
     Dates: start: 20171227
  2. MULTIVITAMIN [Concomitant]
     Active Substance: VITAMINS
     Dosage: DIETARY SUPPLEMENT
     Route: 065
  3. ZOFRAN [Concomitant]
     Active Substance: ONDANSETRON HYDROCHLORIDE
     Route: 065
  4. CARBIDOPA/LEVODOPA [Concomitant]
     Active Substance: CARBIDOPA\LEVODOPA
     Dosage: 25-100 MG
     Route: 065
  5. VITAMIN D [Concomitant]
     Active Substance: CHOLECALCIFEROL
     Dosage: DIETARY SUPPLEMENT
     Route: 065
  6. GLUCOSAMINE CHONDROITIN MSM [Concomitant]
     Route: 065
  7. KETOCONAZOLE. [Concomitant]
     Active Substance: KETOCONAZOLE
     Route: 065
  8. AZILECT [Suspect]
     Active Substance: RASAGILINE MESYLATE
     Route: 065
  9. FLUOCINONIDE. [Concomitant]
     Active Substance: FLUOCINONIDE
     Route: 065
  10. ASPIRIN. [Concomitant]
     Active Substance: ASPIRIN
     Route: 065
  11. TIMOLOL. [Concomitant]
     Active Substance: TIMOLOL
     Route: 065
  12. CLOBETASOL [Concomitant]
     Active Substance: CLOBETASOL
     Route: 065
  13. MIDODRINE [Suspect]
     Active Substance: MIDODRINE
     Route: 065
  14. VITAMIN B1 [Concomitant]
     Active Substance: THIAMINE HYDROCHLORIDE
     Dosage: DIETARY SUPPLEMENT
     Route: 065
  15. LUMIGAN [Concomitant]
     Active Substance: BIMATOPROST
     Route: 065
  16. TYLENOL [Concomitant]
     Active Substance: ACETAMINOPHEN
     Route: 065
  17. VITAMIN C [Concomitant]
     Active Substance: ASCORBIC ACID
     Dosage: DIETARY SUPPLEMENT
     Route: 065
  18. MELATONIN [Concomitant]
     Active Substance: MELATONIN
     Dosage: DIETARY SUPPLEMENT
     Route: 065
  19. MIRALAX [Concomitant]
     Active Substance: POLYETHYLENE GLYCOL 3350
     Dosage: POLYETHYLENE GLYCOL 3350
     Route: 065

REACTIONS (24)
  - Dry mouth [Unknown]
  - Fatigue [Unknown]
  - Weight decreased [Unknown]
  - Amnesia [Unknown]
  - Pancreatitis acute [Unknown]
  - Chest discomfort [Unknown]
  - Pollakiuria [Unknown]
  - Prostatomegaly [Unknown]
  - Salivary hypersecretion [Unknown]
  - Dysarthria [Unknown]
  - Dysphonia [Unknown]
  - Bundle branch block right [Unknown]
  - Orthostatic hypotension [Unknown]
  - Dehydration [Recovered/Resolved]
  - Dysphagia [Unknown]
  - Somnolence [Not Recovered/Not Resolved]
  - Headache [Unknown]
  - Resting tremor [Unknown]
  - Product dose omission [Unknown]
  - Dyspnoea [Unknown]
  - Drooling [Unknown]
  - Disturbance in attention [Unknown]
  - Bradykinesia [Unknown]
  - Abnormal dreams [Unknown]

NARRATIVE: CASE EVENT DATE: 2018
